FAERS Safety Report 5102849-9 (Version None)
Quarter: 2006Q3

REPORT INFORMATION
  Report Type: 
  Country: None (occurrence: None)
  Receive Date: 20060907
  Receipt Date: 20060821
  Transmission Date: 20061208
  Serious: Yes (Other)
  Sender: FDA-Public Use
  Company Number: GB200608004501

PATIENT
  Sex: Female

DRUGS (3)
  1. FLUOXETINE [Suspect]
  2. RISPERDAL [Concomitant]
  3. AMITRIPTYLINE HCL [Concomitant]

REACTIONS (2)
  - BALANCE DISORDER [None]
  - BLOOD SODIUM DECREASED [None]
